FAERS Safety Report 8016027-7 (Version None)
Quarter: 2011Q4

REPORT INFORMATION
  Report Type: 
  Country: None (occurrence: None)
  Receive Date: 20111230
  Receipt Date: 20111221
  Transmission Date: 20120403
  Serious: Yes (Other)
  Sender: FDA-Public Use
  Company Number: US-PFIZER INC-2011310874

PATIENT
  Sex: Female
  Weight: 70.3 kg

DRUGS (1)
  1. PREPARATION H [Suspect]
     Indication: HAEMORRHOIDS
     Dosage: UNK, AS NEEDED
     Dates: start: 20090101, end: 20090301

REACTIONS (1)
  - UTERINE DISORDER [None]
